FAERS Safety Report 9404284 (Version 2)
Quarter: 2013Q3

REPORT INFORMATION
  Report Type: Spontaneous
  Country: US (occurrence: None)
  Receive Date: 20130715
  Receipt Date: 20130830
  Transmission Date: 20140515
  Serious: Yes (Death, Hospitalization, Other)
  Sender: FDA-Public Use
  Company Number: AUR-APL-2013-05268

PATIENT
  Age: 73 Year
  Sex: Male
  Weight: 72.58 kg

DRUGS (5)
  1. CLOPIDOGREL [Suspect]
     Indication: STENT PLACEMENT
     Dosage: 75MG, (75 MG, 1 IN 1 D), UNKNOWN
     Dates: start: 201206
  2. ASPIRIN [Suspect]
     Indication: PRODUCT USED FOR UNKNOWN INDICATION
     Dosage: 81 MG (81 MG, 1 IN 1 D), ORAL
     Route: 048
  3. FISH OIL (FISH OIL) [Concomitant]
  4. SIMASTATIN (SIMVASTATIN) [Concomitant]
  5. RYTHMOL (PPROPAFENONE) [Concomitant]

REACTIONS (21)
  - Cerebral haemorrhage [None]
  - Dementia Alzheimer^s type [None]
  - Haemorrhage intracranial [None]
  - Mental status changes [None]
  - Cognitive disorder [None]
  - Ischaemic cerebral infarction [None]
  - Blood pressure systolic increased [None]
  - Coma [None]
  - Bradycardia [None]
  - Hypotonia [None]
  - Haemorrhagic cerebral infarction [None]
  - Brain herniation [None]
  - Cerebral amyloid angiopathy [None]
  - Body temperature decreased [None]
  - Haematocrit decreased [None]
  - Red blood cell count decreased [None]
  - Blood glucose increased [None]
  - Blood calcium decreased [None]
  - Intracranial pressure increased [None]
  - Vomiting [None]
  - Cytotoxic oedema [None]
